FAERS Safety Report 6542214-0 (Version None)
Quarter: 2010Q1

REPORT INFORMATION
  Report Type: 
  Country: None (occurrence: None)
  Receive Date: 20100119
  Receipt Date: 20100114
  Transmission Date: 20100710
  Serious: Yes (Other)
  Sender: FDA-Public Use
  Company Number: A0839996A

PATIENT

DRUGS (2)
  1. RYTHMOL SR [Suspect]
     Indication: ATRIAL FIBRILLATION
     Dosage: 225MG UNKNOWN
     Route: 065
  2. PROPAFENONE [Suspect]
     Indication: ATRIAL FIBRILLATION
     Dosage: 225MG UNKNOWN

REACTIONS (16)
  - ABDOMINAL PAIN [None]
  - ANXIETY [None]
  - ARRHYTHMIA [None]
  - ASTHENIA [None]
  - CHEST DISCOMFORT [None]
  - CONDITION AGGRAVATED [None]
  - DIZZINESS [None]
  - FEELING ABNORMAL [None]
  - HEADACHE [None]
  - HEART RATE INCREASED [None]
  - HYPERHIDROSIS [None]
  - HYPOTENSION [None]
  - MALAISE [None]
  - PALPITATIONS [None]
  - PULSE PRESSURE DECREASED [None]
  - SYNCOPE [None]
